FAERS Safety Report 12234092 (Version 1)
Quarter: 2016Q2

REPORT INFORMATION
  Report Type: Spontaneous
  Country: US (occurrence: None)
  Receive Date: 20160401
  Receipt Date: 20160401
  Transmission Date: 20160815
  Serious: Yes (Disabling, Other)
  Sender: FDA-Public Use
  Company Number: None

PATIENT
  Age: 58 Year
  Sex: Male
  Weight: 90.72 kg

DRUGS (5)
  1. MAGNESIUM [Concomitant]
     Active Substance: MAGNESIUM
  2. AMLODIPINE BESYLATE. [Suspect]
     Active Substance: AMLODIPINE BESYLATE
     Indication: HYPERTENSION
     Route: 048
     Dates: start: 20141201, end: 20160324
  3. TEA [Concomitant]
     Active Substance: TEA LEAF
  4. ARTICHOKE EXTRACT [Concomitant]
  5. HAWTHORNE [Concomitant]

REACTIONS (7)
  - Local swelling [None]
  - Paraesthesia [None]
  - Joint swelling [None]
  - Nausea [None]
  - Tremor [None]
  - Peripheral swelling [None]
  - Dizziness [None]

NARRATIVE: CASE EVENT DATE: 20160315
